FAERS Safety Report 13944448 (Version 2)
Quarter: 2019Q1

REPORT INFORMATION
  Report Type: Spontaneous
  Country: US (occurrence: US)
  Receive Date: 20170907
  Receipt Date: 20190111
  Transmission Date: 20190417
  Serious: No
  Sender: FDA-Public Use
  Company Number: US-ROCHE-1336622

PATIENT
  Age: 30 Year
  Sex: Female

DRUGS (14)
  1. RITUXIMAB. [Suspect]
     Active Substance: RITUXIMAB
     Indication: IMMUNE THROMBOCYTOPENIC PURPURA
     Route: 042
  2. BORTEZOMIB. [Suspect]
     Active Substance: BORTEZOMIB
     Indication: IMMUNE THROMBOCYTOPENIC PURPURA
     Route: 058
  3. ROMIPLOSTIM [Concomitant]
     Active Substance: ROMIPLOSTIM
     Indication: IMMUNE THROMBOCYTOPENIC PURPURA
     Dosage: (8MCG/KG TO 10 MCG/KG)
     Route: 065
     Dates: start: 2012
  4. DANAZOL. [Concomitant]
     Active Substance: DANAZOL
     Indication: IMMUNE THROMBOCYTOPENIC PURPURA
     Route: 065
     Dates: start: 2004
  5. DEXAMETHASONE. [Concomitant]
     Active Substance: DEXAMETHASONE
     Indication: IMMUNE THROMBOCYTOPENIC PURPURA
     Dosage: HIGH PULSE
     Route: 065
     Dates: start: 2007
  6. RITUXIMAB. [Suspect]
     Active Substance: RITUXIMAB
     Indication: AUTOIMMUNE HAEMOLYTIC ANAEMIA
  7. ELTROMBOPAG [Concomitant]
     Active Substance: ELTROMBOPAG
     Indication: IMMUNE THROMBOCYTOPENIC PURPURA
     Dosage: (50 MG TO 75 MG DAILY) (FOR 3 MONTHS)
     Route: 065
     Dates: start: 2009
  8. RITUXIMAB. [Suspect]
     Active Substance: RITUXIMAB
     Dosage: IN YEAR 2007, RITUXIMAB WAS GIVEN ( X 1)
     Route: 065
  9. VINCRISTINE [Concomitant]
     Active Substance: VINCRISTINE
     Indication: IMMUNE THROMBOCYTOPENIC PURPURA
     Route: 065
  10. CYCLOSPORINE. [Concomitant]
     Active Substance: CYCLOSPORINE
     Indication: IMMUNE THROMBOCYTOPENIC PURPURA
     Dosage: LOW DOSE
     Route: 065
  11. RITUXIMAB. [Suspect]
     Active Substance: RITUXIMAB
     Indication: IMMUNE THROMBOCYTOPENIC PURPURA
     Dosage: IN YEAR 2003, RITUXIMAB WAS GIVEN (WEEKLY X 4)
     Route: 065
  12. RITUXIMAB. [Suspect]
     Active Substance: RITUXIMAB
     Indication: AUTOIMMUNE HAEMOLYTIC ANAEMIA
     Dosage: IN YEAR 2004, RITUXIMAB WAS GIVEN ( X 2)
     Route: 065
  13. RITUXIMAB. [Suspect]
     Active Substance: RITUXIMAB
     Dosage: IN YEAR 2008, RITUXIMAB WAS GIVEN ( X 4)
     Route: 065
  14. DEXAMETHASONE. [Concomitant]
     Active Substance: DEXAMETHASONE
     Route: 065
     Dates: start: 2008

REACTIONS (3)
  - Off label use [Unknown]
  - Neuropathy peripheral [Unknown]
  - Intentional product use issue [Unknown]
